FAERS Safety Report 13690848 (Version 1)
Quarter: 2017Q2

REPORT INFORMATION
  Report Type: Spontaneous
  Country: KR (occurrence: KR)
  Receive Date: 20170626
  Receipt Date: 20170626
  Transmission Date: 20170830
  Serious: Yes (Other)
  Sender: FDA-Public Use
  Company Number: KR-BAYER-2017-117451

PATIENT
  Age: 45 Year
  Sex: Male

DRUGS (3)
  1. CABOZANTINIB [Concomitant]
     Active Substance: CABOZANTINIB
     Dosage: UNK
  2. NEXAVAR [Suspect]
     Active Substance: SORAFENIB
     Indication: METASTASES TO LUNG
     Dosage: UNK
     Dates: start: 2013
  3. NEXAVAR [Suspect]
     Active Substance: SORAFENIB
     Indication: HEPATOCELLULAR CARCINOMA

REACTIONS (2)
  - Metastases to lung [None]
  - Drug ineffective [None]

NARRATIVE: CASE EVENT DATE: 2013
